FAERS Safety Report 18318935 (Version 1)
Quarter: 2020Q3

REPORT INFORMATION
  Report Type: Spontaneous
  Country: FR (occurrence: FR)
  Receive Date: 20200928
  Receipt Date: 20200928
  Transmission Date: 20201103
  Serious: Yes (Hospitalization)
  Sender: FDA-Public Use
  Company Number: FR-JNJFOC-20200937502

PATIENT
  Age: 84 Year
  Sex: Female

DRUGS (2)
  1. RIFADIN [Concomitant]
     Active Substance: RIFAMPIN
     Indication: INFECTION
  2. XARELTO [Suspect]
     Active Substance: RIVAROXABAN
     Indication: PRODUCT USED FOR UNKNOWN INDICATION
     Dosage: 20 MG, QD
     Route: 048

REACTIONS (2)
  - Hospitalisation [Unknown]
  - Gait disturbance [Unknown]
